FAERS Safety Report 16065983 (Version 1)
Quarter: 2019Q2

REPORT INFORMATION
  Report Type: Spontaneous
  Country: US (occurrence: US)
  Receive Date: 20190312
  Receipt Date: 20190312
  Transmission Date: 20190711
  Serious: No
  Sender: FDA-Public Use
  Company Number: None

PATIENT
  Age: 62 Year
  Sex: Female
  Weight: 96.75 kg

DRUGS (5)
  1. NAPROXEN 500MG [Concomitant]
     Active Substance: NAPROXEN
  2. GEMFIBRAZOL [Concomitant]
  3. TIZANIDINE. [Concomitant]
     Active Substance: TIZANIDINE
  4. LOSARTAN POTASIUM TABLETS USP, 50MG [Suspect]
     Active Substance: LOSARTAN POTASSIUM
     Indication: HYPERTENSION
     Dosage: ?          QUANTITY:90 TABLET(S);?
     Route: 048
     Dates: start: 20190208, end: 20190312
  5. LOSARTIN [Concomitant]
     Active Substance: LOSARTAN

REACTIONS (11)
  - Nasopharyngitis [None]
  - Sinonasal obstruction [None]
  - Asthenia [None]
  - Dyspnoea [None]
  - Headache [None]
  - Feeling cold [None]
  - Pain in extremity [None]
  - Musculoskeletal pain [None]
  - Palpitations [None]
  - Dizziness [None]
  - Back pain [None]

NARRATIVE: CASE EVENT DATE: 20190208
